FAERS Safety Report 11330979 (Version 1)
Quarter: 2015Q3

REPORT INFORMATION
  Report Type: Spontaneous
  Country: US (occurrence: None)
  Receive Date: 20150730
  Receipt Date: 20150730
  Transmission Date: 20151125
  Serious: Yes (Disabling)
  Sender: FDA-Public Use
  Company Number: None

PATIENT
  Age: 54 Year
  Sex: Female
  Weight: 58.97 kg

DRUGS (3)
  1. HERBAL BALANCE [Concomitant]
  2. NAPROXEN. [Concomitant]
     Active Substance: NAPROXEN
  3. CIPROFLOXACIN HCL [Suspect]
     Active Substance: CIPROFLOXACIN HYDROCHLORIDE
     Indication: URINARY TRACT INFECTION
     Route: 048
     Dates: start: 20150704, end: 20150709

REACTIONS (11)
  - Joint crepitation [None]
  - Dysstasia [None]
  - Arthralgia [None]
  - Gait disturbance [None]
  - Joint stiffness [None]
  - Muscular weakness [None]
  - Nerve injury [None]
  - Peripheral swelling [None]
  - Myalgia [None]
  - Hypoaesthesia [None]
  - Tendon pain [None]

NARRATIVE: CASE EVENT DATE: 20150707
